FAERS Safety Report 5918064-2 (Version None)
Quarter: 2008Q4

REPORT INFORMATION
  Report Type: 
  Country: None (occurrence: None)
  Receive Date: 20081009
  Receipt Date: 20080925
  Transmission Date: 20090506
  Serious: Yes (Hospitalization)
  Sender: FDA-Public Use
  Company Number: 2008S1017454

PATIENT
  Age: 78 Year
  Sex: Male

DRUGS (19)
  1. FUROSEMIDE [Suspect]
     Indication: RENAL FAILURE
     Dates: start: 20080810, end: 20080813
  2. ALLOPURINOL [Concomitant]
  3. ASPIRIN [Concomitant]
  4. ATENOLOL [Concomitant]
  5. CALCIUM GLUCONATE [Concomitant]
  6. CALCIUM RESONIUM [Concomitant]
  7. CANDESARTAN [Concomitant]
  8. CLOPIDOGREL [Concomitant]
  9. DIAZEPAM [Concomitant]
  10. ENOXAPARIN SODIUM [Concomitant]
  11. LEVOTHYROXINE SODIUM [Concomitant]
  12. LORAZEPAM [Concomitant]
  13. METOCLOPRAMIDE [Concomitant]
  14. OMEPRAZOLE [Concomitant]
  15. ACETAMINOPHEN [Concomitant]
  16. PREDNISOLONE [Concomitant]
  17. SALBUTAMOL [Concomitant]
  18. SENNA [Concomitant]
  19. SIMVASTATIN [Concomitant]

REACTIONS (2)
  - CONFUSIONAL STATE [None]
  - ERYTHEMA MULTIFORME [None]
